FAERS Safety Report 7461070-X (Version None)
Quarter: 2011Q2

REPORT INFORMATION
  Report Type: 
  Country: None (occurrence: None)
  Receive Date: 20110505
  Receipt Date: 20110406
  Transmission Date: 20111010
  Serious: Yes (Hospitalization)
  Sender: FDA-Public Use
  Company Number: US-BAXTER-2011BH009705

PATIENT
  Sex: Male

DRUGS (1)
  1. FACTOR VIII, UNSPECIFIED [Suspect]
     Indication: HAEMOPHILIA

REACTIONS (7)
  - CRYING [None]
  - GAIT DISTURBANCE [None]
  - PAIN [None]
  - JOINT INJURY [None]
  - SYNOVECTOMY [None]
  - POOR VENOUS ACCESS [None]
  - HAEMORRHAGE [None]
